FAERS Safety Report 7353238 (Version 5)
Quarter: 2013Q1

REPORT INFORMATION
  Report Type: Spontaneous
  Country: US (occurrence: US)
  Receive Date: 20100413
  Receipt Date: 20130214
  Transmission Date: 20140127
  Serious: Yes (Hospitalization)
  Sender: FDA-Public Use
  Company Number: US-BAYER-201018992NA

PATIENT
  Age: 50 Year
  Sex: Female
  Weight: 78 kg

DRUGS (11)
  1. OCELLA [Suspect]
     Dosage: UNK
     Dates: start: 20081110, end: 20090120
  2. YASMIN [Suspect]
     Dosage: UNK
     Dates: start: 20081110, end: 20090120
  3. ASTELIN [AZELASTINE HYDROCHLORIDE] [Concomitant]
     Dosage: 137 MCG
     Dates: start: 20051031
  4. ACETAMINOPHEN W/OXYCODONE [Concomitant]
     Dosage: 5/325 MG
     Dates: start: 20060407
  5. IBUPROFENE [Concomitant]
     Dosage: 800 MG, UNK
     Dates: start: 20081201
  6. CEPHALEXIN [Concomitant]
     Dosage: 500 MG, UNK
     Dates: start: 20081201
  7. METRONIDAZOLE [Concomitant]
     Dosage: 500 MG, UNK
     Dates: start: 20080423
  8. MEDROXYPROGESTERONE [Concomitant]
     Dosage: 10 MG, UNK
     Dates: start: 20080627
  9. MULTIVITAMIN [Concomitant]
     Dosage: UNK UNK, QD
     Route: 048
     Dates: end: 20090120
  10. CALCIUM [Concomitant]
     Dosage: 600 MG, BID
     Dates: end: 20090120
  11. VITAMIN D [Concomitant]
     Dosage: 200 U, BID
     Dates: end: 20090120

REACTIONS (2)
  - Pulmonary embolism [None]
  - Off label use [None]
